FAERS Safety Report 20172350 (Version 1)
Quarter: 2021Q4

REPORT INFORMATION
  Report Type: Report from Study
  Country: US (occurrence: US)
  Receive Date: 20211210
  Receipt Date: 20211210
  Transmission Date: 20220304
  Serious: Yes (Other)
  Sender: FDA-Public Use
  Company Number: US-SEATTLE GENETICS-2021SGN04810

PATIENT
  Sex: Female

DRUGS (3)
  1. TUCATINIB [Suspect]
     Active Substance: TUCATINIB
     Indication: Breast cancer female
     Dosage: UNK
     Route: 065
  2. TUCATINIB [Suspect]
     Active Substance: TUCATINIB
     Dosage: UNK
     Route: 065
  3. TUCATINIB [Suspect]
     Active Substance: TUCATINIB
     Dosage: UNK
     Route: 065

REACTIONS (20)
  - Pneumonia [Unknown]
  - Blood test abnormal [Unknown]
  - Dehydration [Unknown]
  - Platelet count decreased [Recovering/Resolving]
  - Blood sodium increased [Unknown]
  - Tremor [Unknown]
  - Muscle twitching [Unknown]
  - Dizziness [Unknown]
  - Nervousness [Unknown]
  - Malaise [Unknown]
  - Dyspepsia [Unknown]
  - Thirst [Unknown]
  - Computerised tomogram abnormal [Unknown]
  - Haemoglobin abnormal [Recovering/Resolving]
  - Hypoaesthesia [Unknown]
  - Eye irritation [Unknown]
  - Platelet count abnormal [Recovering/Resolving]
  - Blood potassium decreased [Unknown]
  - Anaemia [Unknown]
  - Diarrhoea [Recovering/Resolving]
